FAERS Safety Report 14884245 (Version 1)
Quarter: 2018Q2

REPORT INFORMATION
  Report Type: Spontaneous
  Country: US (occurrence: US)
  Receive Date: 20180511
  Receipt Date: 20180511
  Transmission Date: 20180711
  Serious: Yes (Other)
  Sender: FDA-Public Use
  Company Number: US-FRESENIUS KABI-FK201805634

PATIENT
  Age: 13 Year
  Sex: Female

DRUGS (3)
  1. BLEOMYCIN [Suspect]
     Active Substance: BLEOMYCIN SULFATE
     Indication: OVARIAN GERM CELL ENDODERMAL SINUS TUMOUR STAGE I
     Route: 065
  2. CISPLATIN (MANUFACTURER UNKNOWN) [Suspect]
     Active Substance: CISPLATIN
     Indication: OVARIAN GERM CELL ENDODERMAL SINUS TUMOUR STAGE I
     Route: 065
  3. ETOPOSIDE (MANUFACTURER UNKNOWN) [Suspect]
     Active Substance: ETOPOSIDE
     Indication: OVARIAN GERM CELL ENDODERMAL SINUS TUMOUR STAGE I
     Route: 065

REACTIONS (1)
  - Chloroma [Recovered/Resolved]
